FAERS Safety Report 9606234 (Version 2)
Quarter: 2013Q4

REPORT INFORMATION
  Report Type: Spontaneous
  Country: US (occurrence: US)
  Receive Date: 20131008
  Receipt Date: 20131008
  Transmission Date: 20140711
  Serious: No
  Sender: FDA-Public Use
  Company Number: US-AMGEN-USASP2013040636

PATIENT
  Age: 55 Year
  Sex: Female
  Weight: 72.11 kg

DRUGS (9)
  1. PROLIA [Suspect]
     Indication: PRODUCT USED FOR UNKNOWN INDICATION
     Dosage: 60 MG/ML, Q6MO
     Route: 058
     Dates: start: 201211
  2. ZETIA [Concomitant]
     Indication: HYPERLIPIDAEMIA
     Dosage: 10 MG, QD
     Route: 048
     Dates: start: 20120522
  3. CRESTOR [Concomitant]
     Indication: HYPERLIPIDAEMIA
     Dosage: 10 MG, QD
     Route: 048
     Dates: start: 20120522
  4. FLUOXETINE [Concomitant]
     Indication: DEPRESSION
     Dosage: 40 MG, QD
     Route: 048
     Dates: start: 20130218
  5. LORTAB                             /00607101/ [Concomitant]
     Indication: PAIN
     Dosage: 5/500, Q6H
     Route: 048
     Dates: start: 20130508
  6. MULTIVITAMIN                       /00097801/ [Concomitant]
  7. MELATONIN [Concomitant]
  8. CALCIUM [Concomitant]
  9. VITAMIN D                          /00107901/ [Concomitant]

REACTIONS (2)
  - Lip swelling [Recovered/Resolved]
  - Circumoral oedema [Recovered/Resolved]
